FAERS Safety Report 23912133 (Version 1)
Quarter: 2024Q2

REPORT INFORMATION
  Report Type: Spontaneous
  Country: US (occurrence: US)
  Receive Date: 20240528
  Receipt Date: 20240528
  Transmission Date: 20240716
  Serious: No
  Sender: FDA-Public Use
  Company Number: US-BAYER-2024A072811

PATIENT
  Age: 39 Year
  Sex: Female

DRUGS (3)
  1. MIRENA [Suspect]
     Active Substance: LEVONORGESTREL
     Dosage: 20?G/DAY
     Route: 015
  2. Vitamin A + D [Concomitant]
  3. Wegovy fixdose [Concomitant]

REACTIONS (1)
  - Vulvovaginal mycotic infection [None]
